FAERS Safety Report 7251009-4 (Version None)
Quarter: 2011Q1

REPORT INFORMATION
  Report Type: 
  Country: None (occurrence: None)
  Receive Date: 20110128
  Receipt Date: 20110124
  Transmission Date: 20110831
  Serious: Yes (Disabling)
  Sender: FDA-Public Use
  Company Number: B0696249A

PATIENT
  Sex: Male

DRUGS (1)
  1. DUTASTERIDE/TAMSULIN HYDROCHLORIDE [Suspect]
     Indication: BENIGN PROSTATIC HYPERPLASIA
     Route: 048
     Dates: start: 20100902, end: 20101019

REACTIONS (1)
  - RETINAL VEIN THROMBOSIS [None]
